FAERS Safety Report 22884152 (Version 2)
Quarter: 2023Q4

REPORT INFORMATION
  Report Type: Other
  Country: US (occurrence: None)
  Receive Date: 20230830
  Receipt Date: 20231205
  Transmission Date: 20240110
  Serious: No
  Sender: FDA-Public Use
  Company Number: US-ROCHE-3413647

PATIENT
  Age: 45 Year
  Sex: Male
  Weight: 94.432 kg

DRUGS (2)
  1. OCREVUS [Suspect]
     Active Substance: OCRELIZUMAB
     Indication: Relapsing-remitting multiple sclerosis
     Dosage: DOT: 14/AUG/2023, 17/FEB/2023, 04/AUG/2022, 18/AUG/2022
     Route: 042
     Dates: start: 202206
  2. MODERNA COVID-19 VACCINE [Concomitant]
     Active Substance: ELASOMERAN

REACTIONS (1)
  - COVID-19 [Recovered/Resolved]
